FAERS Safety Report 8877488 (Version 1)
Quarter: 2012Q4

REPORT INFORMATION
  Report Type: Spontaneous
  Country: US (occurrence: None)
  Receive Date: 20121026
  Receipt Date: 20121026
  Transmission Date: 20130627
  Serious: Yes (Life-Threatening)
  Sender: FDA-Public Use
  Company Number: 2012P1060932

PATIENT
  Sex: Female

DRUGS (9)
  1. FENTANYL PATCH [Suspect]
     Indication: FIBROMYALGIA
     Dosage: 1 PATCH; Q3D;
  2. FENTANYL PATCH [Suspect]
     Indication: ENTRAPMENT NEUROPATHY
     Dosage: 1 PATCH; Q3D;
  3. FENTANYL PATCH [Suspect]
     Dosage: 1 PATCH; Q3D;
  4. DURAGESIC [Suspect]
     Indication: FIBROMYALGIA
     Dates: start: 2004
  5. DEPRESSION MEDICINE [Suspect]
  6. OXYCODONE [Suspect]
  7. OXYCODONE [Suspect]
  8. VALIUM [Suspect]
  9. DONNATAL [Concomitant]

REACTIONS (11)
  - Incorrect dose administered [None]
  - Suicide attempt [None]
  - Coma [None]
  - Drug withdrawal syndrome [None]
  - Vomiting [None]
  - Feeling of body temperature change [None]
  - Influenza like illness [None]
  - Convulsion [None]
  - Frustration [None]
  - Depression suicidal [None]
  - Insomnia [None]
